FAERS Safety Report 5287529-1 (Version None)
Quarter: 2007Q1

REPORT INFORMATION
  Report Type: 
  Country: None (occurrence: None)
  Receive Date: 20070116
  Receipt Date: 20061002
  Transmission Date: 20070707
  Serious: No
  Sender: FDA-Public Use
  Company Number: 2006SP003497

PATIENT
  Age: 71 Year
  Sex: Male
  Weight: 87.9978 kg

DRUGS (10)
  1. LUNESTA [Suspect]
     Indication: INSOMNIA
     Dosage: 3 MG;HS;ORAL
     Route: 048
     Dates: start: 20060930
  2. VICODIN [Concomitant]
  3. NEURONTIN [Concomitant]
  4. TOPROL-XL [Concomitant]
  5. ASPIRIN [Concomitant]
  6. SIMVASTATIN [Concomitant]
  7. LISINOPRIL [Concomitant]
  8. VITAMIN CAP [Concomitant]
  9. VITAMIN E [Concomitant]
  10. GLYBURIDE AND METFORMIN HCL [Concomitant]

REACTIONS (1)
  - HALLUCINATION [None]
